FAERS Safety Report 19120952 (Version 1)
Quarter: 2021Q2

REPORT INFORMATION
  Report Type: Spontaneous
  Country: US (occurrence: US)
  Receive Date: 20210412
  Receipt Date: 20210412
  Transmission Date: 20210717
  Serious: Yes (Other)
  Sender: FDA-Public Use
  Company Number: None

PATIENT
  Age: 39 Year
  Sex: Female
  Weight: 79.2 kg

DRUGS (7)
  1. OMEGA 3 W TURMERIC [Concomitant]
  2. VALPROIC ACID 500 MG [Suspect]
     Active Substance: VALPROIC ACID
  3. D3 W K2 [Concomitant]
  4. BUPROPION XL 150 MG [Suspect]
     Active Substance: BUPROPION
  5. LATUDA [Suspect]
     Active Substance: LURASIDONE HYDROCHLORIDE
     Indication: BIPOLAR DISORDER
     Dosage: ?          OTHER STRENGTH:NOT PRESCRIBED.;QUANTITY:30 TABLET(S);?
     Route: 048
     Dates: start: 20210306, end: 20210312
  6. LATUDA [Suspect]
     Active Substance: LURASIDONE HYDROCHLORIDE
     Indication: DEPRESSION
     Dosage: ?          OTHER STRENGTH:NOT PRESCRIBED.;QUANTITY:30 TABLET(S);?
     Route: 048
     Dates: start: 20210306, end: 20210312
  7. LATUDA [Suspect]
     Active Substance: LURASIDONE HYDROCHLORIDE
     Indication: PSYCHOTIC DISORDER
     Dosage: ?          OTHER STRENGTH:NOT PRESCRIBED.;QUANTITY:30 TABLET(S);?
     Route: 048
     Dates: start: 20210306, end: 20210312

REACTIONS (4)
  - Insomnia [None]
  - Musculoskeletal stiffness [None]
  - Electrocardiogram QRS complex abnormal [None]
  - Skin disorder [None]

NARRATIVE: CASE EVENT DATE: 20210306
